FAERS Safety Report 18873689 (Version 3)
Quarter: 2021Q2

REPORT INFORMATION
  Report Type: Spontaneous
  Country: US (occurrence: US)
  Receive Date: 20210210
  Receipt Date: 20210616
  Transmission Date: 20210717
  Serious: Yes (Other)
  Sender: FDA-Public Use
  Company Number: US-PFIZER INC-2021091923

PATIENT
  Age: 72 Year
  Sex: Female
  Weight: 79.38 kg

DRUGS (3)
  1. IBRANCE [Suspect]
     Active Substance: PALBOCICLIB
     Dosage: 100 MG
  2. IBRANCE [Suspect]
     Active Substance: PALBOCICLIB
     Dosage: 125 MG, ONCE DAILY FOR THREE WEEKS AND THEN ONE WEEK OFF
  3. IBRANCE [Suspect]
     Active Substance: PALBOCICLIB
     Indication: BREAST CANCER METASTATIC
     Dosage: 125 MG

REACTIONS (4)
  - Diarrhoea [Recovering/Resolving]
  - Weight decreased [Unknown]
  - Pancreatic failure [Unknown]
  - Reaction to excipient [Unknown]

NARRATIVE: CASE EVENT DATE: 202102
